FAERS Safety Report 4764115-0 (Version None)
Quarter: 2005Q3

REPORT INFORMATION
  Report Type: 
  Country: None (occurrence: None)
  Receive Date: 20050908
  Receipt Date: 20050816
  Transmission Date: 20060218
  Serious: Yes (Life-Threatening)
  Sender: FDA-Public Use
  Company Number: JP-MERCK-0508USA03106

PATIENT
  Age: 74 Year
  Sex: Female
  Weight: 45 kg

DRUGS (9)
  1. PRIMAXIN [Suspect]
     Indication: URINARY TRACT INFECTION
     Route: 041
     Dates: start: 20050812, end: 20050813
  2. PRIMAXIN [Suspect]
     Route: 041
     Dates: start: 20050815, end: 20050815
  3. PRIMAXIN [Suspect]
     Route: 041
     Dates: start: 20050805, end: 20050805
  4. CARDENALIN [Concomitant]
     Indication: RENAL FAILURE CHRONIC
     Route: 048
     Dates: start: 20040625, end: 20050811
  5. AMLODIN [Concomitant]
     Indication: RENAL FAILURE CHRONIC
     Route: 048
     Dates: start: 20040625, end: 20050811
  6. DEPAS [Concomitant]
     Indication: RENAL FAILURE CHRONIC
     Route: 048
     Dates: start: 20040625, end: 20050811
  7. KREMEZIN [Concomitant]
     Indication: RENAL FAILURE CHRONIC
     Route: 048
     Dates: start: 20040625, end: 20050811
  8. ALLOPURINOL [Concomitant]
     Indication: RENAL FAILURE CHRONIC
     Route: 048
     Dates: start: 20040625, end: 20050811
  9. CRAVIT [Concomitant]
     Indication: URINARY TRACT INFECTION
     Route: 048
     Dates: start: 20050805, end: 20050810

REACTIONS (3)
  - CONVULSION [None]
  - HAEMODIALYSIS [None]
  - LOSS OF CONSCIOUSNESS [None]
